FAERS Safety Report 4368770-9 (Version None)
Quarter: 2004Q2

REPORT INFORMATION
  Report Type: 
  Country: None (occurrence: None)
  Receive Date: 20040525
  Receipt Date: 20040510
  Transmission Date: 20050107
  Serious: Yes (Hospitalization)
  Sender: FDA-Public Use
  Company Number: 2004AP02200

PATIENT
  Age: 58 Year
  Sex: Male

DRUGS (6)
  1. OMEPRAZOLE [Suspect]
     Indication: REFLUX OESOPHAGITIS
     Dosage: 20 MG DAILY PO
     Route: 048
     Dates: start: 20040216, end: 20040315
  2. GASCON [Concomitant]
  3. TINELAC [Concomitant]
  4. CRAVIT [Concomitant]
  5. THROMBIN [Concomitant]
  6. ALLOID [Concomitant]

REACTIONS (3)
  - AUTOIMMUNE DISORDER [None]
  - OEDEMA PERIPHERAL [None]
  - POLYMYOSITIS [None]
